FAERS Safety Report 12874134 (Version 2)
Quarter: 2017Q1

REPORT INFORMATION
  Report Type: Spontaneous
  Country: US (occurrence: US)
  Receive Date: 20161021
  Receipt Date: 20170123
  Transmission Date: 20170428
  Serious: No
  Sender: FDA-Public Use
  Company Number: US-DEPOMED, INC.-US-2016DEP008132

PATIENT

DRUGS (13)
  1. CORTICOSTEROID NOS [Suspect]
     Active Substance: CORTICOSTEROID NOS
     Dosage: 1 DF, EVERY FOUR MONTHS
     Route: 008
     Dates: end: 2015
  2. NUCYNTA ER [Suspect]
     Active Substance: TAPENTADOL HYDROCHLORIDE
     Indication: BACK PAIN
     Dosage: DF
     Route: 048
     Dates: end: 201507
  3. CORTICOSTEROID NOS [Suspect]
     Active Substance: CORTICOSTEROID NOS
     Indication: BACK PAIN
     Dosage: 1 DF, EVERY SIX MONTHS
     Route: 008
     Dates: start: 2012
  4. NUCYNTA ER [Suspect]
     Active Substance: TAPENTADOL HYDROCHLORIDE
     Dosage: 200 MG, BID
     Route: 048
     Dates: start: 201512, end: 20160103
  5. PROZAC [Concomitant]
     Active Substance: FLUOXETINE HYDROCHLORIDE
     Indication: NERVOUSNESS
     Dosage: FOR MANY YEARS
     Route: 048
  6. XANAX [Concomitant]
     Active Substance: ALPRAZOLAM
     Indication: ANXIETY
     Dosage: 1 MG, QD
     Route: 048
     Dates: start: 1996
  7. NUCYNTA ER [Suspect]
     Active Substance: TAPENTADOL HYDROCHLORIDE
     Dosage: 100 MG, BID
     Route: 048
     Dates: start: 201507, end: 201512
  8. VITAMIN C [Concomitant]
     Active Substance: ASCORBIC ACID
     Indication: VITAMIN SUPPLEMENTATION
     Dosage: 500-1000 MG, 1/DAY
     Route: 048
     Dates: start: 1981
  9. CORTICOSTEROID NOS [Suspect]
     Active Substance: CORTICOSTEROID NOS
     Dosage: 1 DF, EVERY THREE MONTHS
     Route: 008
     Dates: start: 2015
  10. FLUOXETINE [Concomitant]
     Active Substance: FLUOXETINE HYDROCHLORIDE
     Indication: DYSPEPSIA
     Dosage: 45 MG, QD
     Route: 048
     Dates: start: 1996
  11. NUCYNTA [Suspect]
     Active Substance: TAPENTADOL HYDROCHLORIDE
     Dosage: 75 MG, BID
     Route: 048
     Dates: end: 2015
  12. CENTRUM SILVER                     /02363801/ [Concomitant]
     Active Substance: MINERALS\VITAMINS
     Indication: VITAMIN SUPPLEMENTATION
     Dosage: 1 DF, 1/DAY
     Route: 048
  13. NUCYNTA [Suspect]
     Active Substance: TAPENTADOL HYDROCHLORIDE
     Indication: BACK PAIN
     Dosage: 50 MG, BID
     Route: 048
     Dates: start: 201206

REACTIONS (7)
  - Pain [Not Recovered/Not Resolved]
  - Drug ineffective [Recovered/Resolved]
  - Product quality issue [Recovered/Resolved]
  - Incorrect dose administered [Recovered/Resolved]
  - Medication error [Recovered/Resolved]
  - Drug screen positive [Unknown]
  - Wrong technique in product usage process [Recovered/Resolved]

NARRATIVE: CASE EVENT DATE: 201512
